FAERS Safety Report 11357842 (Version 1)
Quarter: 2015Q3

REPORT INFORMATION
  Report Type: Spontaneous
  Country: US (occurrence: US)
  Receive Date: 20150803
  Receipt Date: 20150803
  Transmission Date: 20151125
  Serious: No
  Sender: FDA-Public Use
  Company Number: US-ELI_LILLY_AND_COMPANY-US200911004909

PATIENT
  Age: 7 Year
  Sex: Male

DRUGS (3)
  1. STRATTERA [Suspect]
     Active Substance: ATOMOXETINE HYDROCHLORIDE
     Indication: ATTENTION DEFICIT/HYPERACTIVITY DISORDER
     Dosage: 25 MG, UNKNOWN
     Route: 065
     Dates: start: 20091009, end: 20091108
  2. RISPERIDONE. [Concomitant]
     Active Substance: RISPERIDONE
     Dosage: UNK, UNKNOWN
     Route: 065
  3. VITAMINS NOS [Concomitant]
     Active Substance: VITAMINS
     Dosage: UNK, UNKNOWN
     Route: 065

REACTIONS (7)
  - Decreased appetite [Recovered/Resolved]
  - Urinary incontinence [Unknown]
  - Abdominal pain upper [Recovered/Resolved]
  - Anxiety [Recovered/Resolved]
  - Emotional disorder [Recovered/Resolved]
  - Aggression [Recovered/Resolved]
  - Drug ineffective [Recovered/Resolved]

NARRATIVE: CASE EVENT DATE: 2009
